FAERS Safety Report 6152277 (Version 44)
Quarter: 2014Q1

REPORT INFORMATION
  Report Type: Spontaneous
  Country: US (occurrence: US)
  Receive Date: 20061024
  Receipt Date: 20140228
  Transmission Date: 20141002
  Serious: Yes (Other)
  Sender: FDA-Public Use
  Company Number: PHEH2006US12894

PATIENT
  Sex: Male
  Weight: 81.63 kg

DRUGS (35)
  1. ZOMETA [Suspect]
     Indication: METASTASIS
     Dosage: 4 MG,
     Route: 042
     Dates: start: 2004, end: 200509
  2. ZOMETA [Suspect]
     Indication: PROSTATE CANCER
  3. ZOMETA [Suspect]
     Indication: PLASMA CELL MYELOMA
  4. CLINDAMYCIN [Suspect]
     Indication: PRODUCT USED FOR UNKNOWN INDICATION
     Dosage: 1 DF, QD
     Dates: start: 200911
  5. LOPRESSOR [Concomitant]
     Indication: HYPERTENSION
     Dosage: 1 DF, QD
     Route: 048
  6. TOPROL XL [Concomitant]
     Dosage: 1 DF, QD
  7. LUPRON [Concomitant]
  8. CASODEX [Concomitant]
     Dates: start: 2004
  9. ANTIBIOTICS [Concomitant]
  10. XYZAL [Concomitant]
  11. CODEINE [Concomitant]
  12. MONOPRIL [Concomitant]
     Route: 048
  13. LEVAQUIN [Concomitant]
     Dosage: 500 MG, QD
     Route: 048
  14. FLOMAX ^BOEHRINGER INGELHEIM^ [Concomitant]
     Route: 048
  15. CIPRO ^MILES^ [Concomitant]
     Dosage: 500 MG, QD
     Route: 048
  16. HYDROCODONE [Concomitant]
  17. CHLORHEXIDINE [Concomitant]
  18. HYDROCHLOROTHIAZIDE [Concomitant]
  19. TRIAMTEREN [Concomitant]
     Route: 048
  20. LIPITOR                                 /NET/ [Concomitant]
     Dosage: 1 DF, QD
  21. NIFEREX (POLYSACCHARIDE-IRON COMPLEX) [Concomitant]
     Dosage: 1 DF, QD
  22. FOLIC ACID [Concomitant]
  23. NASACORT [Concomitant]
     Route: 045
  24. RHINOCORT AQUA [Concomitant]
     Route: 045
  25. PREVACID [Concomitant]
     Dosage: 1 DF, BID
     Route: 048
  26. DOXYCYCLINE [Concomitant]
     Dosage: 1 DF, QD
     Route: 048
  27. AVELOX [Concomitant]
     Dosage: 1 DF, QD
     Route: 048
  28. FLUCONAZOLE [Concomitant]
     Dosage: 1 DF, QD
     Route: 048
  29. OFLOXACIN [Concomitant]
  30. AMPICILLIN [Concomitant]
     Dosage: 1 DF, QD
     Route: 048
  31. LORAZEPAM [Concomitant]
  32. ASTELIN [Concomitant]
     Route: 048
  33. CLODERM [Concomitant]
     Route: 061
  34. PROTOPIC [Concomitant]
     Route: 061
  35. HYDROCORTISONE [Concomitant]

REACTIONS (116)
  - Aortic aneurysm [Unknown]
  - Osteonecrosis of jaw [Unknown]
  - Pain in jaw [Unknown]
  - Purulence [Unknown]
  - Impaired healing [Unknown]
  - Gingival cyst [Unknown]
  - Inflammation [Unknown]
  - Wound [Not Recovered/Not Resolved]
  - Tooth disorder [Unknown]
  - Purulent discharge [Unknown]
  - Dysplasia [Unknown]
  - Gingival disorder [Unknown]
  - Fistula [Unknown]
  - Ulcer [Unknown]
  - Tooth fracture [Unknown]
  - Swelling face [Unknown]
  - Hypoaesthesia [Unknown]
  - Dental caries [Unknown]
  - Abscess [Unknown]
  - Soft tissue disorder [Unknown]
  - Osteomyelitis [Not Recovered/Not Resolved]
  - Osteolysis [Unknown]
  - Osteoarthritis [Unknown]
  - Arthralgia [Unknown]
  - Back pain [Unknown]
  - Renal cyst [Unknown]
  - Lumbar spine flattening [Unknown]
  - Scoliosis [Unknown]
  - Intervertebral disc degeneration [Unknown]
  - Intervertebral disc protrusion [Unknown]
  - Tendonitis [Unknown]
  - Anaemia [Unknown]
  - Mitral valve incompetence [Unknown]
  - Tricuspid valve incompetence [Unknown]
  - Facial pain [Unknown]
  - Serratia infection [Unknown]
  - Deafness [Unknown]
  - Exposed bone in jaw [Unknown]
  - Otitis media [Unknown]
  - Eustachian tube dysfunction [Unknown]
  - Dermatitis [Unknown]
  - Patellofemoral pain syndrome [Unknown]
  - Congenital knee deformity [Unknown]
  - Osteochondrosis [Unknown]
  - Colon adenoma [Unknown]
  - Pulmonary granuloma [Unknown]
  - Pulmonary calcification [Unknown]
  - Intestinal mucosal hypertrophy [Unknown]
  - Glaucoma [Unknown]
  - Cataract [Unknown]
  - Gynaecomastia [Unknown]
  - Bursitis [Unknown]
  - Joint effusion [Unknown]
  - Neuralgia [Unknown]
  - Dyslipidaemia [Unknown]
  - Neurodermatitis [Unknown]
  - Vitiligo [Unknown]
  - Dysplastic naevus [Unknown]
  - Pain [Unknown]
  - Organic erectile dysfunction [Unknown]
  - Haematuria [Unknown]
  - Chronic sinusitis [Unknown]
  - Constipation [Unknown]
  - Gastrooesophageal reflux disease [Unknown]
  - Tongue discolouration [Unknown]
  - Visual impairment [Unknown]
  - Onychomadesis [Unknown]
  - Sleep disorder [Unknown]
  - Stress [Unknown]
  - Chest pain [Unknown]
  - Pollakiuria [Unknown]
  - Dry eye [Unknown]
  - Haemorrhoidal haemorrhage [Unknown]
  - Dyspnoea [Unknown]
  - Pigmentation disorder [Unknown]
  - Tinnitus [Unknown]
  - Ear disorder [Unknown]
  - Nasal congestion [Unknown]
  - Nasal turbinate hypertrophy [Unknown]
  - Laryngitis [Unknown]
  - Upper respiratory tract infection [Unknown]
  - Rhinitis [Unknown]
  - Flank pain [Unknown]
  - Upper-airway cough syndrome [Unknown]
  - Spinal osteoarthritis [Unknown]
  - Tinea pedis [Unknown]
  - Oedema mouth [Unknown]
  - Lumbar radiculopathy [Unknown]
  - Neck pain [Unknown]
  - Musculoskeletal pain [Unknown]
  - Pain in extremity [Unknown]
  - Gait disturbance [Unknown]
  - Sinus bradycardia [Unknown]
  - Sinus arrhythmia [Unknown]
  - Bundle branch block right [Unknown]
  - Bundle branch block left [Unknown]
  - Renal disorder [Unknown]
  - Discomfort [Unknown]
  - Polyuria [Unknown]
  - Nephrolithiasis [Unknown]
  - Metastases to bone [Unknown]
  - Onychomycosis [Unknown]
  - Cheilitis [Unknown]
  - Dry skin [Unknown]
  - Astigmatism [Unknown]
  - Presbyopia [Unknown]
  - Fatigue [Unknown]
  - Parakeratosis [Unknown]
  - Dental plaque [Unknown]
  - Tooth discolouration [Unknown]
  - Ureteric dilatation [Unknown]
  - Aortic calcification [Unknown]
  - Aortic disorder [Unknown]
  - Myofascial pain syndrome [Unknown]
  - Carpal tunnel syndrome [Unknown]
  - Bone pain [Unknown]
